FAERS Safety Report 13797927 (Version 1)
Quarter: 2017Q3

REPORT INFORMATION
  Report Type: Spontaneous
  Country: US (occurrence: US)
  Receive Date: 20170726
  Receipt Date: 20170726
  Transmission Date: 20171127
  Serious: Yes (Other)
  Sender: FDA-Public Use
  Company Number: None

PATIENT
  Age: 52 Year
  Sex: Male
  Weight: 74.25 kg

DRUGS (4)
  1. SIMVASTATIN. [Concomitant]
     Active Substance: SIMVASTATIN
  2. IBUPROFEN. [Concomitant]
     Active Substance: IBUPROFEN
  3. ACETAMINOPHEN. [Concomitant]
     Active Substance: ACETAMINOPHEN
  4. NIACIN, EXTENDED RELEASE [Suspect]
     Active Substance: NIACIN
     Indication: HIGH DENSITY LIPOPROTEIN DECREASED
     Dosage: QUANTITY:1 TABLET(S); AT BEDTIME?
     Route: 048

REACTIONS (6)
  - Impaired work ability [None]
  - Insomnia [None]
  - Vasodilatation [None]
  - Product substitution issue [None]
  - Rash [None]
  - Skin irritation [None]

NARRATIVE: CASE EVENT DATE: 20170201
